FAERS Safety Report 20121505 (Version 1)
Quarter: 2021Q4

REPORT INFORMATION
  Report Type: Spontaneous
  Country: US (occurrence: US)
  Receive Date: 20211128
  Receipt Date: 20211128
  Transmission Date: 20220303
  Serious: No
  Sender: FDA-Public Use
  Company Number: US-GE HEALTHCARE-2021CSU005432

PATIENT
  Age: 12 Year
  Sex: Female
  Weight: 81 kg

DRUGS (3)
  1. OMNIPAQUE [Suspect]
     Active Substance: IOHEXOL
     Indication: Computerised tomogram abdomen
     Dosage: 97 ML, SINGLE
     Route: 065
     Dates: start: 20211025, end: 20211025
  2. OMNIPAQUE [Suspect]
     Active Substance: IOHEXOL
     Indication: Pain
  3. OMNIPAQUE [Suspect]
     Active Substance: IOHEXOL
     Indication: Appendicitis

REACTIONS (2)
  - Erythema [Recovered/Resolved]
  - Dyspnoea [Recovered/Resolved]

NARRATIVE: CASE EVENT DATE: 20211025
